FAERS Safety Report 16878835 (Version 3)
Quarter: 2019Q4

REPORT INFORMATION
  Report Type: Spontaneous
  Country: BR (occurrence: BR)
  Receive Date: 20191002
  Receipt Date: 20191018
  Transmission Date: 20200122
  Serious: Yes (Disabling)
  Sender: FDA-Public Use
  Company Number: BR-ALLERGAN-1939952US

PATIENT
  Sex: Male

DRUGS (1)
  1. ATROPINA 1% [Suspect]
     Active Substance: ATROPINE
     Indication: MYOPIA
     Dosage: 2 GTT, QHS
     Route: 047
     Dates: start: 20190926, end: 20190926

REACTIONS (4)
  - Vision blurred [Recovered/Resolved]
  - Blindness [Recovered/Resolved]
  - Off label use [Unknown]
  - Product prescribing issue [Unknown]

NARRATIVE: CASE EVENT DATE: 20190926
